FAERS Safety Report 4430901-X (Version None)
Quarter: 2004Q3

REPORT INFORMATION
  Report Type: 
  Country: None (occurrence: None)
  Receive Date: 20040823
  Receipt Date: 20040728
  Transmission Date: 20050211
  Serious: Yes (Other)
  Sender: FDA-Public Use
  Company Number: US-ROCHE-377100

PATIENT
  Age: 21 Year
  Sex: Male

DRUGS (1)
  1. LARIAM [Suspect]
     Indication: MALARIA PROPHYLAXIS
     Route: 048

REACTIONS (3)
  - ANGER [None]
  - INJURY [None]
  - PHYSICAL ASSAULT [None]
